FAERS Safety Report 5147290-8 (Version None)
Quarter: 2006Q4

REPORT INFORMATION
  Report Type: 
  Country: None (occurrence: None)
  Receive Date: 20061103
  Receipt Date: 20061024
  Transmission Date: 20070319
  Serious: Yes (Life-Threatening, Hospitalization, Other)
  Sender: FDA-Public Use
  Company Number: 2006130004

PATIENT
  Age: 5 Year
  Sex: Male
  Weight: 18.9604 kg

DRUGS (3)
  1. GENOTROPIN [Suspect]
     Indication: GROWTH HORMONE DEFICIENCY
     Dosage: 0.9 MG (0.9 MG, DAILY), SUBCUTANEOUS
     Route: 058
     Dates: start: 20060828, end: 20061005
  2. PREDNISONE TAB [Concomitant]
  3. IMMUNOSUPPRSIVE AGENTS (IMMUNOSUPPRESSIVE AGENTS) [Concomitant]

REACTIONS (3)
  - BLOOD CREATININE INCREASED [None]
  - KIDNEY TRANSPLANT REJECTION [None]
  - RENAL TRANSPLANT [None]
